FAERS Safety Report 11061068 (Version 1)
Quarter: 2015Q2

REPORT INFORMATION
  Report Type: Spontaneous
  Country: US (occurrence: US)
  Receive Date: 20150424
  Receipt Date: 20150424
  Transmission Date: 20150821
  Serious: Yes (Other)
  Sender: FDA-Public Use
  Company Number: US-BAUSCH-BL-2015-011938

PATIENT
  Sex: Male

DRUGS (2)
  1. BUPROPION XL [Suspect]
     Active Substance: BUPROPION
     Indication: PRODUCT USED FOR UNKNOWN INDICATION
     Route: 065
  2. BUPROPION XL [Suspect]
     Active Substance: BUPROPION
     Route: 065

REACTIONS (2)
  - Incorrect dose administered [Unknown]
  - Myocardial infarction [Unknown]
